FAERS Safety Report 15059179 (Version 2)
Quarter: 2018Q3

REPORT INFORMATION
  Report Type: Report from Study
  Country: US (occurrence: US)
  Receive Date: 20180625
  Receipt Date: 20180705
  Transmission Date: 20181010
  Serious: Yes (Hospitalization, Other)
  Sender: FDA-Public Use
  Company Number: US-B.I. PHARMACEUTICALS,INC./RIDGEFIELD-2017-BI-038786

PATIENT
  Sex: Male

DRUGS (5)
  1. OFEV [Suspect]
     Active Substance: NINTEDANIB
     Route: 048
  2. OFEV [Suspect]
     Active Substance: NINTEDANIB
     Route: 048
  3. IMODIUM [Suspect]
     Active Substance: LOPERAMIDE HYDROCHLORIDE
     Indication: DIARRHOEA
     Route: 065
  4. OFEV [Suspect]
     Active Substance: NINTEDANIB
     Indication: IDIOPATHIC PULMONARY FIBROSIS
     Route: 048
     Dates: start: 20170306
  5. AMLODIPINE [Concomitant]
     Active Substance: AMLODIPINE BESYLATE
     Indication: PRODUCT USED FOR UNKNOWN INDICATION
     Route: 065

REACTIONS (18)
  - Muscle spasms [Unknown]
  - Aphonia [Unknown]
  - Cough [Unknown]
  - Blood pressure increased [Unknown]
  - Productive cough [Unknown]
  - Fatigue [Unknown]
  - Headache [Unknown]
  - Constipation [Unknown]
  - Diarrhoea [Unknown]
  - Asthenia [Unknown]
  - Nausea [Unknown]
  - Abdominal discomfort [Unknown]
  - Dyspnoea exertional [Unknown]
  - Skin cancer [Unknown]
  - Blood sodium decreased [Unknown]
  - Decreased appetite [Unknown]
  - Dyspnoea [Unknown]
  - Dyspepsia [Unknown]
